FAERS Safety Report 5616695-0 (Version None)
Quarter: 2008Q1

REPORT INFORMATION
  Report Type: 
  Country: None (occurrence: None)
  Receive Date: 20080207
  Receipt Date: 20080130
  Transmission Date: 20080703
  Serious: Yes (Hospitalization)
  Sender: FDA-Public Use
  Company Number: PHBS2008MX01574

PATIENT
  Age: 9 Month
  Sex: Male

DRUGS (3)
  1. DICLOFENAC [Suspect]
  2. ACYCLOVIR [Concomitant]
  3. DICLOXACILLIN [Concomitant]

REACTIONS (13)
  - ANAEMIA [None]
  - BLOOD TEST ABNORMAL [None]
  - CULTURE TISSUE SPECIMEN [None]
  - DEBRIDEMENT [None]
  - ECTHYMA [None]
  - ERYTHEMA [None]
  - ESCHAR [None]
  - GANGRENE [None]
  - NECROSIS [None]
  - OEDEMA [None]
  - PYREXIA [None]
  - SMEAR TEST [None]
  - THROMBOCYTOPENIA [None]
